FAERS Safety Report 6199701-7 (Version None)
Quarter: 2009Q2

REPORT INFORMATION
  Report Type: 
  Country: None (occurrence: None)
  Receive Date: 20090522
  Receipt Date: 20070926
  Transmission Date: 20091009
  Serious: Yes (Other)
  Sender: FDA-Public Use
  Company Number: US-ALEXION-A200700039

PATIENT
  Sex: Female
  Weight: 68.027 kg

DRUGS (14)
  1. SOLIRIS [Suspect]
     Indication: PAROXYSMAL NOCTURNAL HAEMOGLOBINURIA
     Dosage: 600 MG, SINGLE
     Route: 042
     Dates: start: 20070725, end: 20070725
  2. SOLIRIS [Suspect]
     Dosage: 600 MG, SINGLE
     Route: 042
     Dates: start: 20070801, end: 20070801
  3. SOLIRIS [Suspect]
     Dosage: 600 MG, SINGLE
     Route: 042
     Dates: start: 20070808, end: 20070808
  4. SOLIRIS [Suspect]
     Dosage: 600 MG, SINGLE
     Route: 042
     Dates: start: 20070815, end: 20070815
  5. SOLIRIS [Suspect]
     Dosage: 900 MG, SINGLE
     Route: 042
     Dates: start: 20070822, end: 20070822
  6. SOLIRIS [Suspect]
     Dosage: 900 MG, SINGLE
     Route: 042
     Dates: start: 20070905, end: 20070905
  7. SOLIRIS [Suspect]
     Dosage: 900 MG, SINGLE
     Route: 042
     Dates: start: 20070919, end: 20070919
  8. TYLENOL (CAPLET) [Concomitant]
     Indication: PREMEDICATION
     Dosage: 2 TABLETS, SINGLE
     Route: 048
     Dates: start: 20070725, end: 20070725
  9. CYCLOSPORINE [Concomitant]
     Indication: APLASTIC ANAEMIA
     Route: 048
  10. FOLIC ACID [Concomitant]
     Route: 048
  11. MULTIVITAMIN                       /00831701/ [Concomitant]
     Route: 048
  12. VITAMIN E                          /00110501/ [Concomitant]
     Route: 048
  13. SYNTHROID [Concomitant]
     Indication: HYPOTHYROIDISM
     Route: 048
  14. MAGNESIUM SULFATE [Concomitant]
     Route: 048

REACTIONS (3)
  - BLOOD POTASSIUM INCREASED [None]
  - HEADACHE [None]
  - MUSCULAR WEAKNESS [None]
